FAERS Safety Report 6986800-2 (Version None)
Quarter: 2010Q3

REPORT INFORMATION
  Report Type: 
  Country: None (occurrence: None)
  Receive Date: 20100915
  Receipt Date: 20090804
  Transmission Date: 20110219
  Serious: No
  Sender: FDA-Public Use
  Company Number: US-WYE-H10444509

PATIENT
  Sex: Male
  Weight: 88.53 kg

DRUGS (6)
  1. PRISTIQ [Suspect]
     Indication: DEPRESSION
     Route: 048
     Dates: start: 20090101, end: 20090728
  2. NAPROXEN [Concomitant]
  3. LISINOPRIL [Concomitant]
  4. GEMFIBROZIL [Concomitant]
  5. METFORMIN [Concomitant]
  6. GABAPENTIN [Concomitant]

REACTIONS (1)
  - DRUG SCREEN POSITIVE [None]
